FAERS Safety Report 15382722 (Version 1)
Quarter: 2018Q3

REPORT INFORMATION
  Report Type: Spontaneous
  Country: US (occurrence: US)
  Receive Date: 20180913
  Receipt Date: 20180913
  Transmission Date: 20181010
  Serious: Yes (Hospitalization)
  Sender: FDA-Public Use
  Company Number: US-ASTELLAS-2018US013396

PATIENT
  Age: 71 Year
  Sex: Male

DRUGS (1)
  1. XTANDI [Suspect]
     Active Substance: ENZALUTAMIDE
     Indication: PRODUCT USED FOR UNKNOWN INDICATION
     Dosage: 160 MG, ONCE DAILY WITH OR WITHOUT FOOD AS DIRECTED
     Route: 048
     Dates: end: 20180406

REACTIONS (3)
  - Hypersensitivity [Unknown]
  - Intentional dose omission [Unknown]
  - Hallucination [Unknown]

NARRATIVE: CASE EVENT DATE: 201803
